FAERS Safety Report 5650538-4 (Version None)
Quarter: 2008Q1

REPORT INFORMATION
  Report Type: 
  Country: None (occurrence: None)
  Receive Date: 20080305
  Receipt Date: 20080225
  Transmission Date: 20080703
  Serious: Yes (Hospitalization)
  Sender: FDA-Public Use
  Company Number: US-AMGEN-US260474

PATIENT
  Sex: Female
  Weight: 57.2 kg

DRUGS (12)
  1. PROCRIT [Suspect]
     Indication: ANAEMIA OF MALIGNANT DISEASE
     Dates: start: 19990101
  2. FOSAMAX [Concomitant]
  3. SYNTHROID [Concomitant]
  4. AVALIDE [Concomitant]
  5. LEXAPRO [Concomitant]
  6. XANAX [Concomitant]
  7. SLEEPING MEDICATION NOS [Concomitant]
  8. REMERON [Concomitant]
  9. REGLAN [Concomitant]
  10. AMITIZA [Concomitant]
  11. VITAMIN K [Concomitant]
  12. DARVOCET-N 100 [Concomitant]

REACTIONS (2)
  - LOSS OF CONSCIOUSNESS [None]
  - UPPER LIMB FRACTURE [None]
